FAERS Safety Report 7767065-0 (Version None)
Quarter: 2011Q3

REPORT INFORMATION
  Report Type: 
  Country: None (occurrence: None)
  Receive Date: 20110919
  Receipt Date: 20110901
  Transmission Date: 20111222
  Serious: Yes (Other)
  Sender: FDA-Public Use
  Company Number: 1031480

PATIENT
  Age: 29 Year
  Sex: Male
  Weight: 104.55 kg

DRUGS (2)
  1. ZOFRAN [Concomitant]
  2. MORPHINE SULFATE [Suspect]
     Indication: ABDOMINAL PAIN LOWER
     Dosage: 8 MG, ONCE, INTRAVENOUS
     Route: 042
     Dates: start: 20110814, end: 20110814

REACTIONS (2)
  - ERYTHEMA [None]
  - URTICARIA [None]
